FAERS Safety Report 17999567 (Version 1)
Quarter: 2020Q3

REPORT INFORMATION
  Report Type: Report from Study
  Country: US (occurrence: US)
  Receive Date: 20200709
  Receipt Date: 20200709
  Transmission Date: 20201103
  Serious: Yes (Other)
  Sender: FDA-Public Use
  Company Number: US-ACTELION-A-NJ2018-179524

PATIENT
  Sex: Female
  Weight: 61.68 kg

DRUGS (2)
  1. SILDENAFIL CITRATE. [Concomitant]
     Active Substance: SILDENAFIL CITRATE
  2. OPSUMIT [Suspect]
     Active Substance: MACITENTAN
     Indication: PULMONARY ARTERIAL HYPERTENSION
     Dosage: 10 MG, QD
     Route: 048
     Dates: start: 20180905

REACTIONS (7)
  - Product dose omission issue [Unknown]
  - Cough [Recovering/Resolving]
  - Dialysis [Unknown]
  - Condition aggravated [Unknown]
  - Abdominal pain upper [Recovering/Resolving]
  - Dialysis hypotension [Unknown]
  - Vomiting [Recovering/Resolving]
